FAERS Safety Report 7223493-3 (Version None)
Quarter: 2011Q1

REPORT INFORMATION
  Report Type: 
  Country: None (occurrence: None)
  Receive Date: 20110112
  Receipt Date: 20100729
  Transmission Date: 20110831
  Serious: No
  Sender: FDA-Public Use
  Company Number: US-ALLERGAN-1009875US

PATIENT
  Age: 47 Year
  Sex: Female

DRUGS (3)
  1. CORTICOSTEROID NOS [Concomitant]
     Indication: INFLAMMATION
  2. SYSTANE [Concomitant]
     Indication: DRY EYE
     Dosage: 1 GTT, PRN
     Route: 047
     Dates: start: 20100701
  3. RESTASIS [Suspect]
     Indication: DRY EYE
     Dosage: 1 VIAL
     Route: 047
     Dates: start: 20100728

REACTIONS (3)
  - DRY EYE [None]
  - LACRIMATION INCREASED [None]
  - EYE IRRITATION [None]
